FAERS Safety Report 25918558 (Version 2)
Quarter: 2025Q4

REPORT INFORMATION
  Report Type: Spontaneous
  Country: JP (occurrence: JP)
  Receive Date: 20251014
  Receipt Date: 20251126
  Transmission Date: 20260117
  Serious: Yes (Hospitalization, Other)
  Sender: GLAXOSMITHKLINE
  Company Number: JP-GSKJP-JP2025JPN128150AA

PATIENT
  Age: 29 Year
  Sex: Female

DRUGS (1)
  1. LAMICTAL [Suspect]
     Active Substance: LAMOTRIGINE
     Indication: Adjustment disorder
     Dosage: UNK

REACTIONS (12)
  - Fulminant type 1 diabetes mellitus [Unknown]
  - Drug reaction with eosinophilia and systemic symptoms [Unknown]
  - Guillain-Barre syndrome [Unknown]
  - Diabetic ketoacidosis [Recovered/Resolved]
  - Pyrexia [Unknown]
  - Rash [Unknown]
  - Malaise [Unknown]
  - Movement disorder [Unknown]
  - Nausea [Unknown]
  - Hyperglycaemia [Recovered/Resolved]
  - Product use in unapproved indication [Unknown]
  - Off label use [Unknown]
